FAERS Safety Report 9203486 (Version 1)
Quarter: 2013Q1

REPORT INFORMATION
  Report Type: Spontaneous
  Country: US (occurrence: None)
  Receive Date: 20130329
  Receipt Date: 20130329
  Transmission Date: 20140127
  Serious: Yes (Hospitalization)
  Sender: FDA-Public Use
  Company Number: None

PATIENT
  Age: 62 Year
  Sex: Male
  Weight: 57.3 kg

DRUGS (1)
  1. SUNITINIB [Suspect]
     Indication: LUNG NEOPLASM
     Dosage: 37.5 MG EVERY DAY PO
     Route: 048
     Dates: start: 20130320, end: 20130327

REACTIONS (1)
  - Gastritis [None]
